FAERS Safety Report 8575538-6 (Version None)
Quarter: 2012Q3

REPORT INFORMATION
  Report Type: 
  Country: None (occurrence: None)
  Receive Date: 20120807
  Receipt Date: 20120802
  Transmission Date: 20120928
  Serious: Yes (Other)
  Sender: FDA-Public Use
  Company Number: PHHY2012CA039539

PATIENT
  Sex: Female

DRUGS (7)
  1. ZOLEDRONOC ACID [Suspect]
     Dosage: UNK UKN, UNK
     Route: 042
     Dates: start: 20090626
  2. VITAMIN D [Concomitant]
     Dosage: 1000 U, QD
  3. IMOVANE [Concomitant]
     Dosage: 7.5 MG, HS
  4. ZOLEDRONOC ACID [Suspect]
     Indication: OSTEOPOROSIS
     Dosage: UNK UKN, UNK
     Route: 042
     Dates: start: 20080603
  5. SYNTHROID [Concomitant]
     Dosage: 0.125 MG, QD
  6. ZOLEDRONOC ACID [Suspect]
     Dosage: UNK UKN, UNK
     Route: 042
     Dates: start: 20100629
  7. ZOLEDRONOC ACID [Suspect]
     Dosage: UNK UKN, UNK
     Route: 042
     Dates: start: 20110705

REACTIONS (2)
  - ECONOMIC PROBLEM [None]
  - FEMUR FRACTURE [None]
